FAERS Safety Report 8342172-2 (Version None)
Quarter: 2012Q2

REPORT INFORMATION
  Report Type: 
  Country: None (occurrence: None)
  Receive Date: 20120507
  Receipt Date: 20110129
  Transmission Date: 20120825
  Serious: Yes (Hospitalization)
  Sender: FDA-Public Use
  Company Number: PHHY2011AE116467

PATIENT
  Sex: Female
  Weight: 21 kg

DRUGS (3)
  1. FOLIC ACID [Concomitant]
  2. DEFERASIROX [Suspect]
     Indication: CHELATION THERAPY
     Dosage: 750 MG, (35MG/KG), DAILY
     Route: 048
     Dates: start: 20080401
  3. DEFERASIROX [Suspect]
     Dosage: UNK UKN, UNK
     Route: 048

REACTIONS (2)
  - CONVULSION [None]
  - PARTIAL SEIZURES [None]
